FAERS Safety Report 8943916 (Version 1)
Quarter: 2012Q4

REPORT INFORMATION
  Report Type: 
  Country: US (occurrence: US)
  Receive Date: 20121204
  Receipt Date: 20121204
  Transmission Date: 20130627
  Serious: No
  Sender: FDA-Public Use
  Company Number: US-VERTEX PHARMACEUTICALS INC.-2012-025489

PATIENT
  Age: 41 None
  Sex: Female
  Weight: 101 kg

DRUGS (3)
  1. VX-950 (TELAPREVIR) [Suspect]
     Indication: HEPATITIS C
     Dosage: 750 mg, tid
     Route: 048
     Dates: start: 20121117
  2. PEGINTRON                          /01543001/ [Suspect]
     Indication: HEPATITIS C
     Dosage: 150 ?g, qw
     Route: 058
     Dates: start: 20121117
  3. RIBAVIRIN [Concomitant]
     Indication: HEPATITIS C
     Dosage: 3 tabs in the a.m. and 2 tabs in the p.m.
     Route: 048
     Dates: start: 20121117

REACTIONS (4)
  - Headache [Not Recovered/Not Resolved]
  - Anxiety [Not Recovered/Not Resolved]
  - Fatigue [Not Recovered/Not Resolved]
  - Anorectal discomfort [Not Recovered/Not Resolved]
